FAERS Safety Report 6097072-8 (Version None)
Quarter: 2009Q1

REPORT INFORMATION
  Report Type: 
  Country: None (occurrence: None)
  Receive Date: 20090227
  Receipt Date: 20090217
  Transmission Date: 20090719
  Serious: Yes (Hospitalization)
  Sender: FDA-Public Use
  Company Number: FR-PFIZER INC-2009172061

PATIENT

DRUGS (11)
  1. LYRICA [Suspect]
     Indication: INTERVERTEBRAL DISC PROTRUSION
     Dosage: UNK MG, 1X/DAY
     Route: 048
     Dates: start: 20080702, end: 20080705
  2. CORTANCYL [Suspect]
     Indication: INTERVERTEBRAL DISC PROTRUSION
     Route: 048
     Dates: start: 20080622, end: 20080630
  3. NEXIUM [Suspect]
     Indication: PROPHYLAXIS
     Route: 048
     Dates: start: 20080628, end: 20080705
  4. MYOLASTAN [Suspect]
     Indication: INTERVERTEBRAL DISC PROTRUSION
     Route: 048
     Dates: start: 20080528, end: 20080705
  5. MILLEPERTUIS [Suspect]
     Dates: start: 20080528, end: 20080628
  6. OMEPRAZOLE [Suspect]
     Indication: PROPHYLAXIS
     Route: 048
     Dates: start: 20080528, end: 20080628
  7. NEXEN [Suspect]
     Indication: INTERVERTEBRAL DISC PROTRUSION
     Dosage: 100 MG, 1X/DAY
     Route: 048
     Dates: start: 20080702, end: 20080705
  8. DI-ANTALVIC [Concomitant]
     Indication: CERVICAL ROOT PAIN
     Dates: start: 20080606, end: 20080615
  9. BI-PROFENID [Concomitant]
     Indication: CERVICAL ROOT PAIN
     Dates: start: 20080528, end: 20080604
  10. TRAMADOL HCL [Concomitant]
     Indication: CERVICAL ROOT PAIN
     Dates: start: 20080609, end: 20080619
  11. DOLIPRANE [Concomitant]
     Indication: CERVICAL ROOT PAIN
     Dates: start: 20080617, end: 20080627

REACTIONS (8)
  - CELL DEATH [None]
  - CHOLESTASIS [None]
  - DRUG ERUPTION [None]
  - EPIDERMAL NECROSIS [None]
  - GENERALISED OEDEMA [None]
  - RASH MACULO-PAPULAR [None]
  - RASH PRURITIC [None]
  - SKIN TEST POSITIVE [None]
